FAERS Safety Report 20764749 (Version 5)
Quarter: 2023Q1

REPORT INFORMATION
  Report Type: Report from Study
  Country: CH (occurrence: CH)
  Receive Date: 20220428
  Receipt Date: 20230227
  Transmission Date: 20230418
  Serious: Yes (Hospitalization, Other)
  Sender: FDA-Public Use
  Company Number: CH-TAKEDA-2022TUS027067

PATIENT
  Age: 49 Year
  Sex: Male
  Weight: 80 kg

DRUGS (6)
  1. LANADELUMAB [Suspect]
     Active Substance: LANADELUMAB
     Indication: Hereditary angioedema with C1 esterase inhibitor deficiency
     Dosage: 300 MILLIGRAM, Q2WEEKS
     Route: 058
     Dates: start: 20210413
  2. BERINERT [Concomitant]
     Active Substance: HUMAN C1-ESTERASE INHIBITOR
     Indication: Prophylaxis
     Dosage: 1600 INTERNATIONAL UNIT
     Route: 042
     Dates: start: 20210716
  3. LERCANIDIPINE HYDROCHLORIDE [Concomitant]
     Active Substance: LERCANIDIPINE HYDROCHLORIDE
     Indication: Hypertension
     Dosage: 10 MILLIGRAM
     Route: 048
     Dates: start: 201610
  4. TORSEMIDE [Concomitant]
     Active Substance: TORSEMIDE
     Indication: Hypertension
     Dosage: 10 MILLIGRAM
     Route: 048
     Dates: start: 201610
  5. BISOPROLOL [Concomitant]
     Active Substance: BISOPROLOL
     Indication: Hypertension
     Dosage: 5 MILLIGRAM
     Route: 048
     Dates: start: 201610
  6. SODIUM CHONDROITIN SULFATE [Concomitant]
     Active Substance: SODIUM CHONDROITIN SULFATE
     Indication: Osteoporosis prophylaxis
     Dosage: 800 MILLIGRAM
     Route: 048
     Dates: start: 20210201

REACTIONS (2)
  - Femoral neck fracture [Recovered/Resolved]
  - Road traffic accident [Recovered/Resolved]

NARRATIVE: CASE EVENT DATE: 20210711
